FAERS Safety Report 15559059 (Version 4)
Quarter: 2019Q4

REPORT INFORMATION
  Report Type: Report from Study
  Country: None (occurrence: BR)
  Receive Date: 20181029
  Receipt Date: 20191212
  Transmission Date: 20200122
  Serious: Yes (Hospitalization, Other)
  Sender: FDA-Public Use
  Company Number: BR-ABBVIE-18K-020-2535974-00

PATIENT
  Age: 80 Year
  Sex: Female
  Weight: 88 kg

DRUGS (8)
  1. HUMIRA [Suspect]
     Active Substance: ADALIMUMAB
     Indication: RHEUMATOID ARTHRITIS
     Route: 058
     Dates: start: 20120101, end: 20190808
  2. HUMIRA [Suspect]
     Active Substance: ADALIMUMAB
     Route: 058
     Dates: start: 20191129
  3. ARAVA [Concomitant]
     Active Substance: LEFLUNOMIDE
     Indication: ARTHRITIS
  4. NEOVITE LUTEIN [Concomitant]
     Indication: RETINAL TEAR
  5. SELOZOK [Concomitant]
     Active Substance: METOPROLOL SUCCINATE
     Indication: HYPERTENSION
  6. BRASART [Concomitant]
     Active Substance: VALSARTAN
     Indication: HYPERTENSION
  7. MANIVASC [Concomitant]
     Active Substance: MANIDIPINE HYDROCHLORIDE
     Indication: HYPERTENSION
  8. ENDOFOLIN [Concomitant]
     Active Substance: FOLIC ACID
     Indication: ANAEMIA

REACTIONS (4)
  - Anaemia [Recovering/Resolving]
  - Postoperative wound complication [Recovering/Resolving]
  - Post procedural inflammation [Recovering/Resolving]
  - Osteoarthritis [Recovering/Resolving]

NARRATIVE: CASE EVENT DATE: 20190823
